FAERS Safety Report 8152026-2 (Version None)
Quarter: 2012Q1

REPORT INFORMATION
  Report Type: 
  Country: None (occurrence: None)
  Receive Date: 20120221
  Receipt Date: 20120206
  Transmission Date: 20120608
  Serious: Yes (Hospitalization)
  Sender: FDA-Public Use
  Company Number: US-BAYER-200821303NA

PATIENT
  Age: 32 Year
  Sex: Female
  Weight: 66 kg

DRUGS (9)
  1. YASMIN [Suspect]
     Indication: SKIN DISORDER
     Dosage: 1 TAB/DAY
     Dates: start: 20060309, end: 20061018
  2. FUROSEMIDE [Concomitant]
     Indication: DIURETIC THERAPY
     Dosage: 20 MG (DAILY DOSE), QD,
     Route: 048
     Dates: start: 20060926, end: 20100201
  3. ADVAIR DISKUS 100/50 [Concomitant]
     Dosage: UNK UNK, PRN
  4. YASMIN [Suspect]
     Indication: ABDOMINAL PAIN
  5. YASMIN [Suspect]
     Indication: MENSTRUATION IRREGULAR
  6. TOPAMAX [Concomitant]
     Indication: MIGRAINE
     Dosage: 100 MG, BID
     Route: 048
     Dates: start: 20050401, end: 20100601
  7. YASMIN [Suspect]
     Indication: ACNE
  8. POTASSIUM CHLORIDE [Concomitant]
     Indication: MINERAL SUPPLEMENTATION
     Dosage: 20 MEQ, QD
     Dates: start: 20060926, end: 20100601
  9. OTHER RESPIRATORY SYSTEM PRODUCTS [Concomitant]

REACTIONS (19)
  - PAIN [None]
  - DEEP VEIN THROMBOSIS [None]
  - LOSS OF CONSCIOUSNESS [None]
  - PULMONARY EMBOLISM [None]
  - CARDIAC ARREST [None]
  - THROMBOSIS [None]
  - POOR PERIPHERAL CIRCULATION [None]
  - CONFUSIONAL STATE [None]
  - CARDIAC DISORDER [None]
  - PALPITATIONS [None]
  - ASTHENIA [None]
  - VISUAL IMPAIRMENT [None]
  - SUPRAVENTRICULAR TACHYCARDIA [None]
  - DYSPNOEA [None]
  - CYANOSIS [None]
  - INTRACARDIAC THROMBUS [None]
  - EMOTIONAL DISTRESS [None]
  - ANXIETY [None]
  - FEAR [None]
